FAERS Safety Report 6056615-0 (Version None)
Quarter: 2009Q1

REPORT INFORMATION
  Report Type: 
  Country: None (occurrence: None)
  Receive Date: 20090129
  Receipt Date: 20090121
  Transmission Date: 20090719
  Serious: Yes (Hospitalization)
  Sender: FDA-Public Use
  Company Number: US-TYCO HEALTHCARE/MALLINCKRODT-T200900088

PATIENT
  Sex: Female
  Weight: 48.98 kg

DRUGS (19)
  1. METHADONE HCL [Suspect]
     Indication: PAIN IN EXTREMITY
     Dosage: 5 MG, BID
     Route: 048
     Dates: start: 20081216
  2. SUNITINIB [Suspect]
     Indication: BREAST CANCER
     Dosage: 25 MG, QD
     Route: 048
     Dates: start: 20081216, end: 20081230
  3. PACLITAXEL [Suspect]
     Indication: BREAST CANCER
     Dosage: 127.80 MG, WEEKLY
     Route: 042
     Dates: start: 20081216, end: 20081230
  4. CIPROFLOXACIN HYDROCHLORIDE [Suspect]
     Indication: URINARY TRACT INFECTION
     Dosage: 500 MG, BID
     Route: 048
     Dates: start: 20081231, end: 20090102
  5. VENLAFAXINE HYDROCHLORIDE [Concomitant]
     Dosage: UNK
     Dates: start: 20081126
  6. LORAZEPAM [Concomitant]
     Dosage: UNK
     Dates: start: 20081126
  7. CALCIUM WITH VITAMIN D             /00944201/ [Concomitant]
     Dosage: UNK
  8. FISH OIL [Concomitant]
     Dosage: UNK
  9. MULTI-VITAMINS [Concomitant]
     Dosage: UNK
  10. FLUTICASONE PROPIONATE [Concomitant]
     Dosage: UNK
  11. LEKOVIT CA [Concomitant]
     Dosage: UNK
  12. SIMVASTATIN [Concomitant]
     Dosage: UNK
  13. ACETAMINOPHEN [Concomitant]
     Dosage: UNK
  14. ENOXAPARIN SODIUM [Concomitant]
     Dosage: UNK
     Dates: start: 20081129
  15. WARFARIN [Concomitant]
     Dosage: UNK
     Dates: start: 20081216
  16. GABAPENTIN [Concomitant]
     Dosage: UNK
     Dates: start: 20081216
  17. EMLA                               /00675501/ [Concomitant]
     Dosage: UNK
     Dates: start: 20081218
  18. STOMATOLOGICALS, MOUTH PREPARATIONS [Concomitant]
     Dosage: UNK
     Dates: start: 20081230
  19. DRONABINOL [Concomitant]
     Dosage: UNK
     Dates: start: 20081216

REACTIONS (6)
  - CONSTIPATION [None]
  - DIARRHOEA [None]
  - FEBRILE NEUTROPENIA [None]
  - MENTAL STATUS CHANGES [None]
  - NAUSEA [None]
  - VOMITING [None]
